FAERS Safety Report 12155787 (Version 1)
Quarter: 2016Q1

REPORT INFORMATION
  Report Type: Spontaneous
  Country: FR (occurrence: FR)
  Receive Date: 20160307
  Receipt Date: 20160307
  Transmission Date: 20160526
  Serious: Yes (Hospitalization)
  Sender: FDA-Public Use
  Company Number: FR-CIPLA LTD.-2016FR01845

PATIENT

DRUGS (2)
  1. LAMOTRIGINE. [Suspect]
     Active Substance: LAMOTRIGINE
     Dosage: 8 G (40 TABLETS OF 200 MG)
     Route: 065
  2. LACOSAMIDE [Suspect]
     Active Substance: LACOSAMIDE
     Dosage: 6 G (40 TABLETS OF 200 MG)
     Route: 065

REACTIONS (6)
  - Overdose [Unknown]
  - Suicide attempt [Unknown]
  - Status epilepticus [Unknown]
  - Blood creatine phosphokinase increased [Unknown]
  - Agitation [Unknown]
  - Coma [Recovered/Resolved]
